FAERS Safety Report 14828126 (Version 2)
Quarter: 2018Q2

REPORT INFORMATION
  Report Type: Spontaneous
  Country: US (occurrence: US)
  Receive Date: 20180430
  Receipt Date: 20180507
  Transmission Date: 20180711
  Serious: No
  Sender: FDA-Public Use
  Company Number: US-GLAXOSMITHKLINE-US2018064310

PATIENT
  Age: 51 Year
  Sex: Male

DRUGS (1)
  1. NICORETTE [Suspect]
     Active Substance: NICOTINE
     Indication: PRODUCT USED FOR UNKNOWN INDICATION
     Dosage: 4 MG, UNK
     Dates: start: 20180310, end: 20180410

REACTIONS (9)
  - Gingival pain [Recovered/Resolved]
  - Product quality issue [Unknown]
  - Oral discomfort [Recovered/Resolved]
  - Glossitis [Recovered/Resolved]
  - Oral pain [Recovered/Resolved]
  - Toothache [Recovered/Resolved]
  - Tongue disorder [Recovered/Resolved]
  - Stomatitis [Recovered/Resolved]
  - Hypoaesthesia oral [Recovered/Resolved]

NARRATIVE: CASE EVENT DATE: 20180310
